FAERS Safety Report 8305993-8 (Version None)
Quarter: 2012Q2

REPORT INFORMATION
  Report Type: 
  Country: None (occurrence: None)
  Receive Date: 20120423
  Receipt Date: 20120411
  Transmission Date: 20120825
  Serious: Yes (Hospitalization, Other)
  Sender: FDA-Public Use
  Company Number: AU-ROCHE-1050341

PATIENT
  Sex: Female

DRUGS (11)
  1. DIGOXIN [Concomitant]
  2. SOMAC (AUSTRALIA) [Concomitant]
  3. PROTOS [Concomitant]
  4. ENDEP [Concomitant]
  5. ACTEMRA [Suspect]
     Indication: RHEUMATOID ARTHRITIS
     Dates: start: 20101102
  6. IRON [Concomitant]
  7. METOPROLOL TARTRATE [Concomitant]
  8. IRBESARTAN [Concomitant]
  9. COUMADIN [Concomitant]
  10. ACETAMINOPHEN W/ CODEINE [Concomitant]
  11. FOLIC ACID [Concomitant]

REACTIONS (10)
  - HAEMORRHOIDS [None]
  - ABDOMINAL DISCOMFORT [None]
  - FAECALOMA [None]
  - HEART RATE INCREASED [None]
  - MALAISE [None]
  - HIATUS HERNIA [None]
  - PNEUMONIA [None]
  - NASOPHARYNGITIS [None]
  - UPPER LIMB FRACTURE [None]
  - NAUSEA [None]
